FAERS Safety Report 25262456 (Version 1)
Quarter: 2025Q2

REPORT INFORMATION
  Report Type: Report from Study
  Country: GB (occurrence: GB)
  Receive Date: 20250502
  Receipt Date: 20250502
  Transmission Date: 20250716
  Serious: Yes (Life-Threatening, Hospitalization, Other)
  Sender: CELLTRION
  Company Number: GB-BAXTER-2025BAX014461

PATIENT

DRUGS (10)
  1. BEVACIZUMAB [Suspect]
     Active Substance: BEVACIZUMAB
     Indication: Ovarian cancer
     Dosage: 525 MG, EVERY 2 WEEKS
     Route: 042
     Dates: start: 20240911, end: 20241231
  2. DOXORUBICIN [Suspect]
     Active Substance: DOXORUBICIN
     Indication: Ovarian cancer
     Dosage: 46 MG, EVERY 4 WEEKS (PEGYLATED LIPOSOMAL DOXORUBICIN)
     Route: 042
     Dates: start: 20240911, end: 20241231
  3. MIRVETUXIMAB SORAVTANSINE [Suspect]
     Active Substance: MIRVETUXIMAB SORAVTANSINE
     Indication: Ovarian cancer
  4. CARBOPLATIN [Suspect]
     Active Substance: CARBOPLATIN
     Indication: Ovarian cancer
     Dosage: 340 MG, EVERY 4 WEEKS
     Route: 042
     Dates: start: 20240911, end: 20241231
  5. BISOPROLOL [Concomitant]
     Active Substance: BISOPROLOL
     Indication: Atrial fibrillation
     Dates: start: 20230831
  6. EDOXABAN [Concomitant]
     Active Substance: EDOXABAN
     Indication: Atrial fibrillation
     Dates: start: 20241231, end: 20250115
  7. ATORVASTATIN CALCIUM [Concomitant]
     Active Substance: ATORVASTATIN CALCIUM
     Indication: Hypercholesterolaemia
     Dates: start: 20210312
  8. POLYETHYLENE GLYCOL 3350\POTASSIUM CHLORIDE\SODIUM BICARBONATE\SODIUM [Concomitant]
     Active Substance: POLYETHYLENE GLYCOL 3350\POTASSIUM CHLORIDE\SODIUM BICARBONATE\SODIUM CHLORIDE
     Indication: Constipation
     Dates: start: 20241231
  9. MAGNESIUM GLYCEROPHOSPHATE [Concomitant]
     Active Substance: MAGNESIUM GLYCEROPHOSPHATE
     Indication: Hypomagnesaemia
     Dates: start: 20241224
  10. CLOTRIMAZOLE [Concomitant]
     Active Substance: CLOTRIMAZOLE
     Indication: Vulvovaginal candidiasis
     Dates: start: 20241224

REACTIONS (4)
  - Haemorrhage intracranial [Not Recovered/Not Resolved]
  - Thrombocytopenia [Recovered/Resolved]
  - Subarachnoid haemorrhage [Unknown]
  - Product use issue [Unknown]

NARRATIVE: CASE EVENT DATE: 20250116
